FAERS Safety Report 16474139 (Version 5)
Quarter: 2019Q4

REPORT INFORMATION
  Report Type: Spontaneous
  Country: US (occurrence: US)
  Receive Date: 20190625
  Receipt Date: 20191008
  Transmission Date: 20200122
  Serious: No
  Sender: FDA-Public Use
  Company Number: US-PFIZER INC-2019263187

PATIENT
  Age: 62 Year
  Sex: Female
  Weight: 84 kg

DRUGS (5)
  1. IBRANCE [Suspect]
     Active Substance: PALBOCICLIB
     Dosage: 125 MG, UNK
  2. IBRANCE [Suspect]
     Active Substance: PALBOCICLIB
     Indication: BREAST CANCER FEMALE
     Dosage: 100 MG, CYCLIC (100 MG CAPSULE, 1 CAPSULE DAILY BY MOUTH FOR 3 WEEKS AND THEN OFF FOR A WEEK)
     Route: 048
     Dates: start: 201808
  3. FASLODEX [Concomitant]
     Active Substance: FULVESTRANT
     Dosage: 2 DF, MONTHLY (2 SHOTS/ ONCE A MONTH)
  4. IBRANCE [Suspect]
     Active Substance: PALBOCICLIB
     Dosage: 100 MG, CYCLIC (DAILY (ONCE) 3 WEEKS ON 1 WEEK OFF)
     Route: 048
  5. FASLODEX [Concomitant]
     Active Substance: FULVESTRANT
     Indication: HORMONE SUPPRESSION THERAPY
     Dosage: UNK, MONTHLY  (INJECTION ONCE PER MONTH)
     Dates: start: 201808

REACTIONS (7)
  - Dyspnoea [Recovering/Resolving]
  - Malaise [Recovering/Resolving]
  - Poor quality product administered [Unknown]
  - Neoplasm progression [Not Recovered/Not Resolved]
  - Pleural effusion [Unknown]
  - Fatigue [Recovering/Resolving]
  - Product storage error [Unknown]

NARRATIVE: CASE EVENT DATE: 201802
